FAERS Safety Report 23965529 (Version 2)
Quarter: 2024Q2

REPORT INFORMATION
  Report Type: Report from Study
  Country: GB (occurrence: GB)
  Receive Date: 20240612
  Receipt Date: 20240625
  Transmission Date: 20240716
  Serious: Yes (Hospitalization)
  Sender: FDA-Public Use
  Company Number: GB-SANDOZ-SDZ2024GB056546

PATIENT
  Sex: Male

DRUGS (1)
  1. HYRIMOZ [Suspect]
     Active Substance: ADALIMUMAB-ADAZ
     Indication: Crohn^s disease
     Dosage: 40 MG, Q2W (40MG/0.4ML SOLUTION FOR INJECTION PRE-FILLED PENS (SANDOZ LTD) 2 PRE-FILLED  DISPOSABLE
     Route: 058

REACTIONS (3)
  - Illness [Unknown]
  - Ill-defined disorder [Unknown]
  - Pain in extremity [Unknown]
